FAERS Safety Report 5622317-5 (Version None)
Quarter: 2008Q1

REPORT INFORMATION
  Report Type: 
  Country: None (occurrence: None)
  Receive Date: 20080206
  Receipt Date: 20080128
  Transmission Date: 20080703
  Serious: Yes (Hospitalization)
  Sender: FDA-Public Use
  Company Number: 2007-03888

PATIENT
  Age: 77 Year
  Sex: Female
  Weight: 55 kg

DRUGS (6)
  1. VELCADE [Suspect]
     Indication: MULTIPLE MYELOMA
     Dosage: 1.30 MG/M2, INTRAVENOUS
     Route: 042
     Dates: start: 20070823, end: 20071116
  2. PREVISCAN (FLUINDIONE) [Concomitant]
  3. OMEPRAZOLE [Concomitant]
  4. BISOPROLOL FUMARATE [Concomitant]
  5. BISOPROLOL FUMARATE [Concomitant]
  6. DEXAMETHASONE TAB [Concomitant]

REACTIONS (2)
  - GASTROINTESTINAL NECROSIS [None]
  - PERITONITIS [None]
